FAERS Safety Report 6223401-8 (Version None)
Quarter: 2009Q2

REPORT INFORMATION
  Report Type: 
  Country: None (occurrence: None)
  Receive Date: 20090611
  Receipt Date: 20090601
  Transmission Date: 20091009
  Serious: Yes (Other)
  Sender: FDA-Public Use
  Company Number: US-ELI_LILLY_AND_COMPANY-US200906000399

PATIENT
  Age: 69 Year
  Sex: Female

DRUGS (5)
  1. FORTEO [Suspect]
  2. FOSAMAX [Concomitant]
  3. BONIVA [Concomitant]
     Indication: OSTEOPOROSIS
     Dosage: 150 MG, MONTHLY (1/M)
     Route: 048
     Dates: start: 20070701, end: 20080601
  4. MULTI-VITAMIN [Concomitant]
  5. CALCIUM [Concomitant]

REACTIONS (2)
  - FEMUR FRACTURE [None]
  - STRESS FRACTURE [None]
